FAERS Safety Report 8557894-8 (Version None)
Quarter: 2012Q3

REPORT INFORMATION
  Report Type: 
  Country: None (occurrence: None)
  Receive Date: 20120801
  Receipt Date: 20100611
  Transmission Date: 20120928
  Serious: Yes (Hospitalization)
  Sender: FDA-Public Use
  Company Number: US-BAYER-US-2006-000218

PATIENT
  Age: 36 Year
  Sex: Female
  Weight: 63.636 kg

DRUGS (2)
  1. PAXIL [Concomitant]
     Indication: DEPRESSION
     Dosage: DAILY DOSE 20 MG
     Route: 048
     Dates: start: 20051001
  2. YASMIN [Suspect]
     Indication: CONTRACEPTION
     Dosage: 1 DF (DAILY DOSE), QD, ORAL
     Route: 048
     Dates: start: 20050401, end: 20051226

REACTIONS (3)
  - MENTAL DISORDER [None]
  - CEREBROVASCULAR ACCIDENT [None]
  - TRANSIENT ISCHAEMIC ATTACK [None]
